FAERS Safety Report 10713890 (Version 2)
Quarter: 2015Q1

REPORT INFORMATION
  Report Type: Spontaneous
  Country: US (occurrence: US)
  Receive Date: 20150115
  Receipt Date: 20150121
  Transmission Date: 20150721
  Serious: Yes (Death)
  Sender: FDA-Public Use
  Company Number: CHPA2015US000681

PATIENT
  Age: 55 Year
  Sex: Male

DRUGS (1)
  1. BUCKLEY^S UNKNOWN [Suspect]
     Active Substance: DEXTROMETHORPHAN
     Indication: ASTHMA
     Dosage: UNK
     Route: 048

REACTIONS (3)
  - Myocardial infarction [Fatal]
  - Product use issue [Unknown]
  - Therapeutic response unexpected [Unknown]

NARRATIVE: CASE EVENT DATE: 2014
